FAERS Safety Report 7320862-8 (Version None)
Quarter: 2011Q1

REPORT INFORMATION
  Report Type: 
  Country: None (occurrence: None)
  Receive Date: 20110228
  Receipt Date: 20110223
  Transmission Date: 20110831
  Serious: No
  Sender: FDA-Public Use
  Company Number: US-TEVA-268702USA

PATIENT
  Sex: Female
  Weight: 79.45 kg

DRUGS (2)
  1. PLAN B ONE-STEP [Suspect]
     Indication: POST COITAL CONTRACEPTION
     Route: 048
     Dates: start: 20110214, end: 20110214
  2. TRINESSA [Concomitant]
     Indication: CONTRACEPTION
     Route: 048
     Dates: start: 20101110

REACTIONS (1)
  - MENSTRUATION IRREGULAR [None]
